FAERS Safety Report 7945716-5 (Version None)
Quarter: 2011Q4

REPORT INFORMATION
  Report Type: 
  Country: None (occurrence: None)
  Receive Date: 20111129
  Receipt Date: 20110815
  Transmission Date: 20120403
  Serious: No
  Sender: FDA-Public Use
  Company Number: US-MYLANLABS-2011S1017114

PATIENT
  Sex: Male

DRUGS (2)
  1. CLONAZEPAM [Suspect]
     Indication: PANIC ATTACK
     Dates: start: 20110101
  2. CLONAZEPAM [Suspect]
     Indication: ANXIETY
     Dates: start: 20110101

REACTIONS (7)
  - DRY MOUTH [None]
  - PANIC ATTACK [None]
  - REACTION TO DRUG EXCIPIENTS [None]
  - DRUG INEFFECTIVE [None]
  - ANXIETY [None]
  - HEADACHE [None]
  - INSOMNIA [None]
